FAERS Safety Report 15089584 (Version 1)
Quarter: 2018Q2

REPORT INFORMATION
  Report Type: Spontaneous
  Country: US (occurrence: US)
  Receive Date: 20180608
  Receipt Date: 20180608
  Transmission Date: 20180711
  Serious: Yes (Death)
  Sender: FDA-Public Use
  Company Number: None

PATIENT
  Sex: Female
  Weight: 88.4 kg

DRUGS (1)
  1. NEPA (NETUPITANT/PALONOSETRON) [Suspect]
     Active Substance: NETUPITANT\PALONOSETRON HYDROCHLORIDE
     Route: 048

REACTIONS (2)
  - Transfusion-related acute lung injury [None]
  - Bone marrow transplant [None]

NARRATIVE: CASE EVENT DATE: 20180123
